FAERS Safety Report 9703672 (Version 1)
Quarter: 2013Q4

REPORT INFORMATION
  Report Type: Spontaneous
  Country: IT (occurrence: IT)
  Receive Date: 20131122
  Receipt Date: 20131122
  Transmission Date: 20140711
  Serious: Yes (Hospitalization)
  Sender: FDA-Public Use
  Company Number: IT-JNJFOC-20131110183

PATIENT
  Age: 61 Year
  Sex: Female

DRUGS (1)
  1. CAELYX [Suspect]
     Indication: OVARIAN CANCER
     Route: 042
     Dates: start: 20131104, end: 20131104

REACTIONS (4)
  - Chest discomfort [Recovering/Resolving]
  - Erythema [Recovering/Resolving]
  - Headache [Recovering/Resolving]
  - Throat tightness [Recovering/Resolving]
